FAERS Safety Report 6067631-7 (Version None)
Quarter: 2009Q1

REPORT INFORMATION
  Report Type: 
  Country: None (occurrence: None)
  Receive Date: 20090205
  Receipt Date: 20090129
  Transmission Date: 20090719
  Serious: Yes (Other)
  Sender: FDA-Public Use
  Company Number: GB-B.I. PHARMACEUTICALS,INC./RIDGEFIELD-2008-UK-01907UK

PATIENT
  Age: 76 Year
  Sex: Female

DRUGS (4)
  1. DIXARIT [Suspect]
     Indication: HYPERHIDROSIS
     Dosage: 100MCG
     Route: 048
     Dates: start: 20050101, end: 20080101
  2. LODINE [Suspect]
     Indication: OSTEOARTHRITIS
     Dosage: 600MG
     Route: 048
     Dates: start: 20070101
  3. FUROSEMIDE [Concomitant]
     Indication: OEDEMA
     Dosage: 160MG
     Route: 048
     Dates: start: 20050101
  4. QUINAPRIL [Concomitant]
     Indication: CARDIAC FAILURE
     Dosage: 5MG

REACTIONS (2)
  - CARDIAC FAILURE [None]
  - DYSPNOEA [None]
